FAERS Safety Report 9895923 (Version 2)
Quarter: 2014Q1

REPORT INFORMATION
  Report Type: Spontaneous
  Country: US (occurrence: US)
  Receive Date: 20140213
  Receipt Date: 20140213
  Transmission Date: 20141002
  Serious: No
  Sender: FDA-Public Use
  Company Number: US-BRISTOL-MYERS SQUIBB COMPANY-17315193

PATIENT
  Age: 69 Year
  Sex: Female
  Weight: 52 kg

DRUGS (1)
  1. ABATACEPT SUBQ INJECTION 125MG/ML [Suspect]
     Indication: RHEUMATOID ARTHRITIS
     Dosage: LAST INF ON 14JAN2013,8APR13
     Route: 058
     Dates: start: 20121224

REACTIONS (3)
  - Headache [Unknown]
  - Pain [Unknown]
  - Product quality issue [Unknown]
